FAERS Safety Report 25160732 (Version 1)
Quarter: 2025Q2

REPORT INFORMATION
  Report Type: Report from Study
  Country: US (occurrence: US)
  Receive Date: 20250404
  Receipt Date: 20250404
  Transmission Date: 20250717
  Serious: Yes (Hospitalization)
  Sender: NOVARTIS
  Company Number: US-002147023-NVSC2025US054114

PATIENT
  Sex: Female

DRUGS (2)
  1. LEQVIO [Suspect]
     Active Substance: INCLISIRAN SODIUM
     Indication: Product used for unknown indication
     Route: 058
     Dates: start: 20241226
  2. LEQVIO [Suspect]
     Active Substance: INCLISIRAN SODIUM
     Route: 058
     Dates: start: 20250327

REACTIONS (3)
  - Bronchitis chronic [Unknown]
  - Adverse drug reaction [Unknown]
  - Respiratory tract infection viral [Unknown]
